FAERS Safety Report 5815618-9 (Version None)
Quarter: 2008Q3

REPORT INFORMATION
  Report Type: 
  Country: None (occurrence: None)
  Receive Date: 20080716
  Receipt Date: 20080709
  Transmission Date: 20090109
  Serious: Yes (Hospitalization)
  Sender: FDA-Public Use
  Company Number: FPI-08-TEV-0057

PATIENT
  Sex: Male
  Weight: 19.9583 kg

DRUGS (7)
  1. TEV-TROPIN [Suspect]
     Indication: GROWTH HORMONE DEFICIENCY
     Dosage: 1 MG ONCE WEEKLY, SC
     Route: 058
     Dates: start: 20080215, end: 20080610
  2. ENALAPRIL MALEATE [Suspect]
     Indication: HYPERTENSION
  3. AMLODIPINE [Concomitant]
  4. BICITRA SOLUTION [Concomitant]
  5. VITAMIN D [Concomitant]
  6. CALCITRIOL [Concomitant]
  7. IRON SUPPLEMENTS [Concomitant]

REACTIONS (1)
  - RENAL FAILURE ACUTE [None]
